FAERS Safety Report 6541096-0 (Version None)
Quarter: 2010Q1

REPORT INFORMATION
  Report Type: 
  Country: None (occurrence: None)
  Receive Date: 20100118
  Receipt Date: 20100114
  Transmission Date: 20100710
  Serious: Yes (Hospitalization)
  Sender: FDA-Public Use
  Company Number: US-BRISTOL-MYERS SQUIBB COMPANY-14933956

PATIENT
  Sex: Female

DRUGS (10)
  1. CARBOPLATIN [Suspect]
     Indication: BREAST CANCER METASTATIC
     Dosage: AUC 2, DRUG INTERRUPTED ON 23-DEC09
     Dates: start: 20090430
  2. ABRAXANE [Suspect]
     Indication: BREAST CANCER METASTATIC
     Dosage: 100MG/M2, INTERRUPTED ON 23-DEC09
     Dates: start: 20090430
  3. BEVACIZUMAB [Suspect]
     Indication: BREAST CANCER METASTATIC
     Dosage: 10MG/KG
     Dates: start: 20090430, end: 20091223
  4. CALCIUM [Concomitant]
  5. VITAMIN D [Concomitant]
  6. MULTI-VITAMINS [Concomitant]
  7. XANAX [Concomitant]
  8. PROMETHAZINE [Concomitant]
  9. CLARITIN [Concomitant]
  10. SALINE [Concomitant]
     Dosage: SALINE NASAL SPRAY
     Route: 045

REACTIONS (1)
  - THROMBOSIS [None]
